FAERS Safety Report 15122222 (Version 1)
Quarter: 2018Q3

REPORT INFORMATION
  Report Type: Spontaneous
  Country: US (occurrence: US)
  Receive Date: 20180709
  Receipt Date: 20180709
  Transmission Date: 20181010
  Serious: Yes (Other)
  Sender: FDA-Public Use
  Company Number: US-MYLANLABS-2018M1048885

PATIENT
  Age: 56 Year
  Sex: Female

DRUGS (1)
  1. PENICILLAMINE [Suspect]
     Active Substance: PENICILLAMINE
     Indication: CYSTINURIA
     Route: 065

REACTIONS (3)
  - Discomfort [Unknown]
  - Anxiety [Unknown]
  - Elastosis perforans [Recovering/Resolving]
